FAERS Safety Report 5428641-3 (Version None)
Quarter: 2007Q3

REPORT INFORMATION
  Report Type: 
  Country: None (occurrence: None)
  Receive Date: 20070828
  Receipt Date: 20070816
  Transmission Date: 20080115
  Serious: Yes (Death, Other)
  Sender: FDA-Public Use
  Company Number: TR-SHR-TR-2007-030842

PATIENT
  Age: 51 Year
  Sex: Male

DRUGS (1)
  1. FLUDARA [Suspect]
     Indication: LYMPHOCYTIC LYMPHOMA
     Dosage: 40 MG/M2, UNK
     Route: 048

REACTIONS (4)
  - CYTOMEGALOVIRUS INFECTION [None]
  - PANCYTOPENIA [None]
  - PARANEOPLASTIC PEMPHIGUS [None]
  - RESPIRATORY FAILURE [None]
